FAERS Safety Report 14006157 (Version 2)
Quarter: 2017Q4

REPORT INFORMATION
  Report Type: Spontaneous
  Country: US (occurrence: US)
  Receive Date: 20170924
  Receipt Date: 20171109
  Transmission Date: 20180321
  Serious: Yes (Hospitalization, Other)
  Sender: FDA-Public Use
  Company Number: US-ASTRAZENECA-2017SE96358

PATIENT
  Age: 87 Year
  Sex: Female
  Weight: 65.8 kg

DRUGS (2)
  1. TUDORZA PRESSAIR [Suspect]
     Active Substance: ACLIDINIUM BROMIDE
     Indication: CHRONIC OBSTRUCTIVE PULMONARY DISEASE
     Dosage: 400 MCG ONE PUFF TWICE PER DAY
     Route: 055
  2. SYMBICORT [Suspect]
     Active Substance: BUDESONIDE\FORMOTEROL FUMARATE DIHYDRATE
     Indication: CHRONIC OBSTRUCTIVE PULMONARY DISEASE
     Dosage: 160/4.5 MCG TWO PUFFS TWICE PER DAY
     Route: 055

REACTIONS (9)
  - Pneumonia [Unknown]
  - Pulmonary mass [Unknown]
  - Disorganised speech [Unknown]
  - Device malfunction [Unknown]
  - Cerebrovascular accident [Unknown]
  - Cataract [Unknown]
  - Intentional product misuse [Unknown]
  - Endometrial cancer [Not Recovered/Not Resolved]
  - Drug dose omission [Unknown]

NARRATIVE: CASE EVENT DATE: 2017
